FAERS Safety Report 25644001 (Version 1)
Quarter: 2025Q3

REPORT INFORMATION
  Report Type: Spontaneous
  Country: EU (occurrence: EU)
  Receive Date: 20250805
  Receipt Date: 20250805
  Transmission Date: 20251021
  Serious: Yes (Hospitalization, Other)
  Sender: RANBAXY
  Company Number: EU-SUN PHARMACEUTICAL INDUSTRIES LTD-2025RR-520747

PATIENT
  Age: 78 Year
  Sex: Female
  Weight: 46 kg

DRUGS (8)
  1. PANTOPRAZOLE [Suspect]
     Active Substance: PANTOPRAZOLE
     Indication: Oesophagitis
     Dosage: 40 MILLIGRAM, BID
     Route: 048
     Dates: start: 20250117, end: 20250305
  2. FUROSEMIDE [Suspect]
     Active Substance: FUROSEMIDE
     Indication: Product used for unknown indication
     Dosage: 40 MILLIGRAM, DAILY
     Route: 048
     Dates: start: 20250228, end: 20250305
  3. OCTREOTIDE [Concomitant]
     Active Substance: OCTREOTIDE
     Indication: Product used for unknown indication
     Route: 065
  4. LANREOTIDE [Concomitant]
     Active Substance: LANREOTIDE
     Indication: Product used for unknown indication
     Route: 065
  5. MORPHINE [Concomitant]
     Active Substance: MORPHINE
     Indication: Product used for unknown indication
     Route: 065
  6. EZETIMIBE [Concomitant]
     Active Substance: EZETIMIBE
     Indication: Product used for unknown indication
     Route: 065
  7. AMLODIPINE [Concomitant]
     Active Substance: AMLODIPINE BESYLATE
     Indication: Product used for unknown indication
     Route: 065
  8. KARDEGIC [Concomitant]
     Active Substance: ASPIRIN DL-LYSINE
     Indication: Product used for unknown indication
     Route: 065

REACTIONS (1)
  - Hypomagnesaemia [Recovered/Resolved]

NARRATIVE: CASE EVENT DATE: 20250305
